FAERS Safety Report 20015626 (Version 1)
Quarter: 2021Q4

REPORT INFORMATION
  Report Type: Spontaneous
  Country: US (occurrence: None)
  Receive Date: 20211101
  Receipt Date: 20211101
  Transmission Date: 20220303
  Serious: Yes (Death)
  Sender: FDA-Public Use
  Company Number: None

PATIENT
  Age: 51 Year
  Sex: Female
  Weight: 68.6 kg

DRUGS (1)
  1. VANCOMYCIN [Suspect]
     Active Substance: VANCOMYCIN
     Indication: Device related infection
     Dosage: FREQUENCY : ONCE;?
     Route: 042
     Dates: start: 20211020, end: 20211020

REACTIONS (5)
  - Malaise [None]
  - Vomiting [None]
  - Seizure [None]
  - Unresponsive to stimuli [None]
  - Apnoea [None]

NARRATIVE: CASE EVENT DATE: 20211020
